FAERS Safety Report 4453657-3 (Version None)
Quarter: 2004Q3

REPORT INFORMATION
  Report Type: 
  Country: None (occurrence: None)
  Receive Date: 20040920
  Receipt Date: 20040422
  Transmission Date: 20050211
  Serious: Yes (Hospitalization, Other)
  Sender: FDA-Public Use
  Company Number: US-BRISTOL-MYERS SQUIBB COMPANY-12567707

PATIENT
  Age: 63 Year
  Sex: Female

DRUGS (15)
  1. ABATACEPT [Suspect]
     Indication: RHEUMATOID ARTHRITIS
     Route: 042
     Dates: start: 20040310, end: 20040406
  2. METHOTREXATE [Suspect]
     Dates: start: 20010709
  3. ARAVA [Suspect]
     Dates: start: 20030701
  4. AZULFIDINE [Concomitant]
     Dates: start: 19951101
  5. PLAQUENIL [Concomitant]
     Dates: start: 19951101
  6. SALAGEN [Concomitant]
     Dates: start: 19990301
  7. PREDNISONE [Concomitant]
     Dates: start: 19800201
  8. FOLATE [Concomitant]
     Dates: start: 19980801
  9. PREMPRO [Concomitant]
     Dates: start: 19930401
  10. THYROID TAB [Concomitant]
     Dates: start: 19681001
  11. TOPROL-XL [Concomitant]
     Dates: start: 19980901
  12. ZOCOR [Concomitant]
     Dates: start: 20010901
  13. DILTIAZEM HCL [Concomitant]
     Dates: start: 19940701
  14. ASPIRIN [Concomitant]
     Dates: start: 20020115
  15. LOTENSIN [Concomitant]
     Dates: start: 20020115

REACTIONS (2)
  - ARRHYTHMIA [None]
  - SMALL CELL LUNG CANCER STAGE UNSPECIFIED [None]
